FAERS Safety Report 8420407-5 (Version None)
Quarter: 2012Q2

REPORT INFORMATION
  Report Type: 
  Country: None (occurrence: None)
  Receive Date: 20120607
  Receipt Date: 20120531
  Transmission Date: 20120825
  Serious: Yes (Hospitalization, Disabling)
  Sender: FDA-Public Use
  Company Number: US-MERCK-1202USA00845

PATIENT
  Age: 59 Year
  Sex: Female

DRUGS (4)
  1. FOSAMAX [Suspect]
     Indication: BONE LOSS
     Route: 048
     Dates: start: 20000101, end: 20080116
  2. FOSAMAX [Suspect]
     Route: 048
     Dates: start: 20080116, end: 20100104
  3. BONIVA [Suspect]
     Indication: BONE LOSS
     Route: 048
     Dates: start: 20100325, end: 20110207
  4. ALENDRONATE SODIUM [Suspect]
     Route: 048

REACTIONS (15)
  - HYPERTHYROIDISM [None]
  - HYSTERECTOMY [None]
  - BONE DENSITY DECREASED [None]
  - GASTROOESOPHAGEAL REFLUX DISEASE [None]
  - FEMUR FRACTURE [None]
  - STRESS FRACTURE [None]
  - MEDICAL DEVICE COMPLICATION [None]
  - CORONARY ARTERY DISEASE [None]
  - FOOT FRACTURE [None]
  - DEPRESSION [None]
  - WEIGHT DECREASED [None]
  - GASTROINTESTINAL DISORDER [None]
  - ROTATOR CUFF SYNDROME [None]
  - THROMBOSIS [None]
  - EMOTIONAL DISORDER [None]
